FAERS Safety Report 4685684-5 (Version None)
Quarter: 2005Q2

REPORT INFORMATION
  Report Type: 
  Country: None (occurrence: None)
  Receive Date: 20050608
  Receipt Date: 20050309
  Transmission Date: 20051028
  Serious: Yes (Hospitalization, Disabling)
  Sender: FDA-Public Use
  Company Number: US-MERCK-0503USA01773

PATIENT
  Age: 58 Year
  Sex: Male
  Weight: 64 kg

DRUGS (8)
  1. VIOXX [Suspect]
     Indication: SHOULDER PAIN
     Route: 048
     Dates: start: 20000101, end: 20040930
  2. VIOXX [Suspect]
     Route: 048
     Dates: start: 20000101, end: 20040930
  3. VIOXX [Suspect]
     Route: 048
     Dates: start: 20000101, end: 20040930
  4. VIOXX [Suspect]
     Route: 048
     Dates: start: 20000101, end: 20040930
  5. VIOXX [Suspect]
     Indication: ARTHRITIS
     Route: 048
     Dates: start: 20000101, end: 20040930
  6. VIOXX [Suspect]
     Route: 048
     Dates: start: 20000101, end: 20040930
  7. VIOXX [Suspect]
     Route: 048
     Dates: start: 20000101, end: 20040930
  8. VIOXX [Suspect]
     Route: 048
     Dates: start: 20000101, end: 20040930

REACTIONS (4)
  - ANXIETY [None]
  - BACK PAIN [None]
  - CEREBROVASCULAR ACCIDENT [None]
  - HYPERTENSION [None]
